FAERS Safety Report 7482608-2 (Version None)
Quarter: 2011Q2

REPORT INFORMATION
  Report Type: 
  Country: None (occurrence: None)
  Receive Date: 20110516
  Receipt Date: 20110427
  Transmission Date: 20111010
  Serious: No
  Sender: FDA-Public Use
  Company Number: US-B.I. PHARMACEUTICALS,INC./RIDGEFIELD-2011-BP-08520BP

PATIENT
  Age: 89 Year
  Sex: Female
  Weight: 72.57 kg

DRUGS (6)
  1. PRADAXA [Suspect]
     Indication: ATRIAL FIBRILLATION
     Dosage: 300 MG
     Dates: start: 20101213, end: 20101214
  2. FLOMAX [Concomitant]
     Dates: start: 20100318
  3. COLACE [Concomitant]
     Dates: start: 20100318
  4. AVODART [Concomitant]
     Dates: start: 20100318
  5. DIOVAN [Concomitant]
     Dates: start: 20100318
  6. ALENDRONATE SODIUM [Concomitant]
     Dates: start: 20100318

REACTIONS (3)
  - ABDOMINAL PAIN [None]
  - DYSPEPSIA [None]
  - NAUSEA [None]
